FAERS Safety Report 13824700 (Version 9)
Quarter: 2017Q3

REPORT INFORMATION
  Report Type: Spontaneous
  Country: CA (occurrence: CA)
  Receive Date: 20170802
  Receipt Date: 20170929
  Transmission Date: 20171127
  Serious: Yes (Hospitalization, Other)
  Sender: FDA-Public Use
  Company Number: CA-HIKMA PHARMACEUTICALS CO. LTD-2017CA009904

PATIENT

DRUGS (7)
  1. PENTASA [Concomitant]
     Active Substance: MESALAMINE
     Dosage: UNK
     Route: 048
     Dates: start: 2009
  2. ACETAMINOPHEN W/CODEINE PHOSPHATE [Concomitant]
     Active Substance: ACETAMINOPHEN\CODEINE PHOSPHATE
     Indication: PAIN
     Dosage: 2 DF, DAILY OR AS NEEDED
     Route: 048
  3. MORPHINE [Concomitant]
     Active Substance: MORPHINE
     Indication: PAIN
     Dosage: 10 MG,  AS NEEDED
     Route: 048
  4. PANTOPRAZOLE [Concomitant]
     Active Substance: PANTOPRAZOLE
     Dosage: 40 MG,  ONCE A DAY (1X/DAY) AFTER DINNER OR AS NEEDED
     Route: 048
  5. PREDNISONE. [Concomitant]
     Active Substance: PREDNISONE
     Indication: INFLAMMATION
     Dosage: 40 MG,  DAILY DOSE IN THE MORNING AND TAPERING DOWN 5 MG EVERY SATURDAY UNTIL DONE OR AS NEEDED
     Route: 048
  6. INFLECTRA [Suspect]
     Active Substance: INFLIXIMAB-DYYB
     Indication: CROHN^S DISEASE
     Dosage: 400 MG, CYCLIC  (EVERY 0,2, 6 WEEKS, THEN EVERY 8 WEEKS)
     Route: 042
     Dates: start: 20170518, end: 20170710
  7. ZOPLICONE [Concomitant]
     Active Substance: ZOPICLONE
     Indication: SLEEP DISORDER
     Dosage: 7.5 MG, DAILY OR AS NEEDED
     Route: 048

REACTIONS (12)
  - Back pain [Unknown]
  - Skin ulcer [Unknown]
  - Cholelithiasis [Not Recovered/Not Resolved]
  - Abdominal discomfort [Not Recovered/Not Resolved]
  - Pharyngeal abscess [Not Recovered/Not Resolved]
  - Pain [Not Recovered/Not Resolved]
  - Localised infection [Unknown]
  - Rash [Unknown]
  - Scar [Unknown]
  - Ear infection [Unknown]
  - Tooth abscess [Unknown]
  - Tooth fracture [Unknown]

NARRATIVE: CASE EVENT DATE: 20170711
